FAERS Safety Report 7397392-0 (Version None)
Quarter: 2011Q1

REPORT INFORMATION
  Report Type: 
  Country: None (occurrence: None)
  Receive Date: 20110328
  Receipt Date: 20110318
  Transmission Date: 20110831
  Serious: Yes (Hospitalization)
  Sender: FDA-Public Use
  Company Number: 2010AC000353

PATIENT
  Sex: Female

DRUGS (18)
  1. INSULIN [Concomitant]
  2. METOPROLOL [Concomitant]
  3. DIGOXIN [Suspect]
     Dosage: 250 MCG;QD;PO
     Route: 048
     Dates: start: 20050401, end: 20060901
  4. DIGOXIN [Suspect]
     Dosage: 250 MCG;TIW;PO
     Route: 048
     Dates: start: 20060901, end: 20070101
  5. COZAAR [Concomitant]
  6. HYDRALAZINE [Concomitant]
  7. COUMADIN [Concomitant]
  8. DIGOXIN [Suspect]
     Dosage: PO
     Route: 048
     Dates: start: 20060101, end: 20071001
  9. DARVOCET-N 50 [Concomitant]
  10. DIGOXIN [Suspect]
     Dosage: 250 MCG;QD;PO
     Route: 048
     Dates: start: 20070101, end: 20070904
  11. LOPRESSOR [Concomitant]
  12. SODIUM BICARBONATE [Concomitant]
  13. ASPIRIN [Concomitant]
  14. LOTREL [Concomitant]
  15. DOPAMINE HCL [Concomitant]
  16. KAYEXALATE [Concomitant]
  17. FUROSEMIDE [Concomitant]
  18. ATROPINE [Concomitant]

REACTIONS (54)
  - CONTUSION [None]
  - SYNCOPE [None]
  - UNRESPONSIVE TO STIMULI [None]
  - PALPITATIONS [None]
  - ECONOMIC PROBLEM [None]
  - FACIAL BONES FRACTURE [None]
  - THYROID MASS [None]
  - CARDIAC FAILURE CONGESTIVE [None]
  - BALANCE DISORDER [None]
  - RENAL TUBULAR NECROSIS [None]
  - CHEST DISCOMFORT [None]
  - CHEST PAIN [None]
  - CONDITION AGGRAVATED [None]
  - FALL [None]
  - CAROTID ARTERY STENOSIS [None]
  - AORTIC VALVE STENOSIS [None]
  - ATRIAL FIBRILLATION [None]
  - VOMITING [None]
  - HYPERKALAEMIA [None]
  - PULMONARY OEDEMA [None]
  - CARDIAC FAILURE ACUTE [None]
  - FOOT FRACTURE [None]
  - SPINAL COMPRESSION FRACTURE [None]
  - BLOOD ELECTROLYTES ABNORMAL [None]
  - TREATMENT NONCOMPLIANCE [None]
  - PAIN IN EXTREMITY [None]
  - HYPOTENSION [None]
  - HYPOPHAGIA [None]
  - DIABETIC NEPHROPATHY [None]
  - PULMONARY HYPERTENSION [None]
  - DIZZINESS [None]
  - PERIPHERAL VASCULAR DISORDER [None]
  - DECREASED APPETITE [None]
  - TOXICITY TO VARIOUS AGENTS [None]
  - URINARY TRACT INFECTION [None]
  - RENOVASCULAR HYPERTENSION [None]
  - NEPHROGENIC ANAEMIA [None]
  - CHRONIC OBSTRUCTIVE PULMONARY DISEASE [None]
  - PLEURAL EFFUSION [None]
  - RENAL FAILURE ACUTE [None]
  - HEART RATE INCREASED [None]
  - ACTIVITIES OF DAILY LIVING IMPAIRED [None]
  - HIP FRACTURE [None]
  - INJURY [None]
  - PAIN [None]
  - NAUSEA [None]
  - BRADYCARDIA [None]
  - ASTHENIA [None]
  - CONGESTIVE CARDIOMYOPATHY [None]
  - MITRAL VALVE INCOMPETENCE [None]
  - TRICUSPID VALVE INCOMPETENCE [None]
  - CONDUCTION DISORDER [None]
  - PNEUMONIA [None]
  - BLOOD PRESSURE INADEQUATELY CONTROLLED [None]
